FAERS Safety Report 24913387 (Version 1)
Quarter: 2025Q1

REPORT INFORMATION
  Report Type: Spontaneous
  Country: PL (occurrence: PL)
  Receive Date: 20250201
  Receipt Date: 20250201
  Transmission Date: 20250409
  Serious: Yes (Other)
  Sender: ABBVIE
  Company Number: None

PATIENT
  Age: 65 Year
  Sex: Female

DRUGS (4)
  1. RINVOQ [Suspect]
     Active Substance: UPADACITINIB
     Indication: Psoriatic arthropathy
     Route: 048
     Dates: start: 20240124
  2. PANTOPRAZOLE SODIUM [Concomitant]
     Active Substance: PANTOPRAZOLE SODIUM
     Indication: Product used for unknown indication
     Dates: start: 20220504
  3. ROSULIP PLUS [Concomitant]
     Indication: Product used for unknown indication
     Dates: start: 20230315
  4. TELMISARTAN [Concomitant]
     Active Substance: TELMISARTAN
     Indication: Product used for unknown indication
     Dates: start: 20231019

REACTIONS (1)
  - Superficial vein thrombosis [Recovered/Resolved]

NARRATIVE: CASE EVENT DATE: 20240924
